FAERS Safety Report 7511549-7 (Version None)
Quarter: 2011Q2

REPORT INFORMATION
  Report Type: 
  Country: None (occurrence: None)
  Receive Date: 20110531
  Receipt Date: 20110519
  Transmission Date: 20111010
  Serious: Yes (Other)
  Sender: FDA-Public Use
  Company Number: GB-TYCO HEALTHCARE/MALLINCKRODT-T201101111

PATIENT
  Sex: Female

DRUGS (2)
  1. OPTIRAY 350 [Suspect]
     Indication: COMPUTERISED TOMOGRAM CORONARY ARTERY
     Dosage: 90 ML, SINGLE
     Route: 042
     Dates: start: 20110519, end: 20110519
  2. SODIUM CHLORIDE [Suspect]
     Indication: COMPUTERISED TOMOGRAM CORONARY ARTERY
     Dosage: 38 ML, SINGLE
     Route: 042
     Dates: start: 20110519, end: 20110519

REACTIONS (2)
  - DRUG ADMINISTRATION ERROR [None]
  - AIR EMBOLISM [None]
